FAERS Safety Report 7932712-7 (Version None)
Quarter: 2011Q4

REPORT INFORMATION
  Report Type: 
  Country: None (occurrence: None)
  Receive Date: 20111122
  Receipt Date: 20111111
  Transmission Date: 20120403
  Serious: Yes (Other)
  Sender: FDA-Public Use
  Company Number: DE-JNJFOC-20111105069

PATIENT
  Age: 29 Year
  Sex: Male

DRUGS (1)
  1. REMICADE [Suspect]
     Indication: COLITIS ULCERATIVE
     Route: 042
     Dates: start: 20090101

REACTIONS (4)
  - INFUSION RELATED REACTION [None]
  - TACHYCARDIA [None]
  - FLUSHING [None]
  - DYSPNOEA [None]
